FAERS Safety Report 9797670 (Version 1)
Quarter: 2014Q1

REPORT INFORMATION
  Report Type: Spontaneous
  Country: US (occurrence: US)
  Receive Date: 20140106
  Receipt Date: 20140106
  Transmission Date: 20141002
  Serious: No
  Sender: FDA-Public Use
  Company Number: US-PFIZER INC-2014002454

PATIENT
  Age: 36 Year
  Sex: Male
  Weight: 149.66 kg

DRUGS (5)
  1. CHANTIX [Suspect]
     Indication: SMOKING CESSATION THERAPY
     Dosage: 0.5 MG, 1X/DAY
     Route: 048
     Dates: start: 201312, end: 201312
  2. CHANTIX [Suspect]
     Dosage: UNK
     Route: 048
     Dates: start: 201312
  3. LITHIUM [Concomitant]
     Dosage: 1800 MG, 1X/DAY
  4. WELLBUTRIN [Concomitant]
     Dosage: 150 MG, 1X/DAY
  5. HALDOL [Concomitant]
     Dosage: 10 MG, 1X/DAY

REACTIONS (1)
  - Abnormal dreams [Not Recovered/Not Resolved]
